APPROVED DRUG PRODUCT: XIFYRM
Active Ingredient: MELOXICAM
Strength: 30MG/ML (30MG/ML)
Dosage Form/Route: SOLUTION;INTRAVENOUS
Application: N218395 | Product #001
Applicant: AZURITY PHARMACEUTICALS INC
Approved: Jun 5, 2025 | RLD: Yes | RS: Yes | Type: RX

PATENTS:
Patent 12263176 | Expires: Jul 31, 2041